FAERS Safety Report 14302845 (Version 1)
Quarter: 2017Q4

REPORT INFORMATION
  Report Type: Report from Study
  Country: DE (occurrence: DE)
  Receive Date: 20171219
  Receipt Date: 20171219
  Transmission Date: 20180321
  Serious: Yes (Other)
  Sender: FDA-Public Use
  Company Number: DE-TEVA-2017-DE-832775

PATIENT
  Sex: Male
  Weight: 70 kg

DRUGS (54)
  1. DEXAMETHASONE. [Suspect]
     Active Substance: DEXAMETHASONE
     Route: 065
     Dates: start: 20170825
  2. DEXAMETHASONE. [Suspect]
     Active Substance: DEXAMETHASONE
     Route: 065
     Dates: start: 20170818
  3. DEXAMETHASONE. [Suspect]
     Active Substance: DEXAMETHASONE
     Route: 065
     Dates: start: 20170721
  4. DEXAMETHASONE. [Suspect]
     Active Substance: DEXAMETHASONE
     Route: 065
     Dates: start: 20170901
  5. CARFILZOMIB [Suspect]
     Active Substance: CARFILZOMIB
     Dates: start: 20170728
  6. DEXAMETHASONE. [Suspect]
     Active Substance: DEXAMETHASONE
     Route: 065
     Dates: start: 20170811
  7. DEXAMETHASONE. [Suspect]
     Active Substance: DEXAMETHASONE
     Route: 065
     Dates: start: 20170908
  8. DEXAMETHASONE. [Suspect]
     Active Substance: DEXAMETHASONE
     Route: 065
     Dates: start: 20170622
  9. DEXAMETHASONE. [Suspect]
     Active Substance: DEXAMETHASONE
     Route: 065
     Dates: start: 20170629
  10. CARFILZOMIB [Suspect]
     Active Substance: CARFILZOMIB
     Dates: start: 20170608
  11. DEXAMETHASONE. [Suspect]
     Active Substance: DEXAMETHASONE
     Route: 065
     Dates: start: 20170615
  12. DEXAMETHASONE. [Suspect]
     Active Substance: DEXAMETHASONE
     Route: 065
     Dates: start: 20170714
  13. CARFILZOMIB [Suspect]
     Active Substance: CARFILZOMIB
     Dates: start: 20170727
  14. PALLADON [Concomitant]
     Active Substance: HYDROMORPHONE
     Dates: start: 20130604
  15. DEXAMETHASONE. [Suspect]
     Active Substance: DEXAMETHASONE
     Route: 065
     Dates: start: 20170810
  16. DEXAMETHASONE. [Suspect]
     Active Substance: DEXAMETHASONE
     Route: 065
     Dates: start: 20170817
  17. DEXAMETHASONE. [Suspect]
     Active Substance: DEXAMETHASONE
     Route: 065
     Dates: start: 20170831
  18. DEXAMETHASONE. [Suspect]
     Active Substance: DEXAMETHASONE
     Route: 065
     Dates: start: 20170609
  19. DEXAMETHASONE. [Suspect]
     Active Substance: DEXAMETHASONE
     Route: 065
     Dates: start: 20170824
  20. CARFILZOMIB [Suspect]
     Active Substance: CARFILZOMIB
     Route: 042
     Dates: start: 20170811
  21. CARFILZOMIB [Suspect]
     Active Substance: CARFILZOMIB
     Dates: start: 20170908
  22. CARFILZOMIB [Suspect]
     Active Substance: CARFILZOMIB
     Dates: start: 20170713
  23. CARFILZOMIB [Suspect]
     Active Substance: CARFILZOMIB
     Route: 042
     Dates: start: 20170614
  24. CARFILZOMIB [Suspect]
     Active Substance: CARFILZOMIB
     Dates: start: 20170825
  25. CARFILZOMIB [Suspect]
     Active Substance: CARFILZOMIB
     Dates: start: 20170720
  26. CARFILZOMIB [Suspect]
     Active Substance: CARFILZOMIB
     Dates: start: 20170615
  27. CARFILZOMIB [Suspect]
     Active Substance: CARFILZOMIB
     Dates: start: 20170630
  28. CARFILZOMIB [Suspect]
     Active Substance: CARFILZOMIB
     Dates: start: 20170714
  29. CARFILZOMIB [Suspect]
     Active Substance: CARFILZOMIB
     Dates: start: 20170721
  30. CARFILZOMIB [Suspect]
     Active Substance: CARFILZOMIB
     Dates: start: 20170810
  31. BISOPROLOL [Concomitant]
     Active Substance: BISOPROLOL
     Dosage: 2.5 MG, QD
     Dates: start: 20130226
  32. MARCUMAR [Concomitant]
     Active Substance: PHENPROCOUMON
     Dosage: 1.5 MG, AS NECESSARY
     Dates: start: 20130226
  33. DEXAMETHASONE. [Suspect]
     Active Substance: DEXAMETHASONE
     Indication: PLASMA CELL MYELOMA
     Route: 065
     Dates: start: 20170727
  34. DEXAMETHASONE. [Suspect]
     Active Substance: DEXAMETHASONE
     Route: 065
     Dates: start: 20170802
  35. DEXAMETHASONE. [Suspect]
     Active Substance: DEXAMETHASONE
     Route: 065
     Dates: start: 20170713
  36. DEXAMETHASONE. [Suspect]
     Active Substance: DEXAMETHASONE
     Route: 065
     Dates: start: 20170608
  37. DEXAMETHASONE. [Suspect]
     Active Substance: DEXAMETHASONE
     Route: 065
     Dates: start: 20170803
  38. HYDROMORPHONE [Concomitant]
     Active Substance: HYDROMORPHONE
     Dates: start: 20161129
  39. ZOMETA [Concomitant]
     Active Substance: ZOLEDRONIC ACID
     Dosage: 4 MG, QMO
     Dates: start: 20130401
  40. COTRIM [Concomitant]
     Active Substance: SULFAMETHOXAZOLE\TRIMETHOPRIM
     Dosage: 960 MG, QOD
     Dates: start: 20130226
  41. DEXAMETHASONE. [Suspect]
     Active Substance: DEXAMETHASONE
     Route: 065
     Dates: start: 20170628
  42. DEXAMETHASONE. [Suspect]
     Active Substance: DEXAMETHASONE
     Route: 065
     Dates: start: 20170616
  43. DEXAMETHASONE. [Suspect]
     Active Substance: DEXAMETHASONE
     Route: 065
     Dates: start: 20170728
  44. CARFILZOMIB [Suspect]
     Active Substance: CARFILZOMIB
     Route: 042
     Dates: start: 20170609
  45. CARFILZOMIB [Suspect]
     Active Substance: CARFILZOMIB
     Route: 042
     Dates: start: 20170817
  46. CARFILZOMIB [Suspect]
     Active Substance: CARFILZOMIB
     Route: 042
     Dates: start: 20170824
  47. CARFILZOMIB [Suspect]
     Active Substance: CARFILZOMIB
     Dates: start: 20170818
  48. DEXAMETHASONE. [Suspect]
     Active Substance: DEXAMETHASONE
     Route: 065
     Dates: start: 20170720
  49. DEXAMETHASONE. [Suspect]
     Active Substance: DEXAMETHASONE
     Route: 065
     Dates: start: 20170623
  50. DEXAMETHASONE. [Suspect]
     Active Substance: DEXAMETHASONE
     Route: 065
     Dates: start: 20170907
  51. CARFILZOMIB [Suspect]
     Active Substance: CARFILZOMIB
     Indication: PLASMA CELL MYELOMA
     Route: 042
     Dates: start: 20170629
  52. CARFILZOMIB [Suspect]
     Active Substance: CARFILZOMIB
     Dates: start: 20170907
  53. ACICLOVIR [Concomitant]
     Active Substance: ACYCLOVIR
     Indication: PROPHYLAXIS
     Dosage: 400 MG, BID
     Dates: start: 20130226
  54. CALCIUM [Concomitant]
     Active Substance: CALCIUM
     Dosage: 1000 MG, QOD
     Dates: start: 20150609

REACTIONS (3)
  - Drug ineffective [Unknown]
  - Peripheral motor neuropathy [Not Recovered/Not Resolved]
  - Plasma cell myeloma [Not Recovered/Not Resolved]

NARRATIVE: CASE EVENT DATE: 2017
